FAERS Safety Report 16758855 (Version 4)
Quarter: 2020Q2

REPORT INFORMATION
  Report Type: Spontaneous
  Country: US (occurrence: US)
  Receive Date: 20190830
  Receipt Date: 20200518
  Transmission Date: 20200713
  Serious: No
  Sender: FDA-Public Use
  Company Number: US-BIOGEN-2019BI00780820

PATIENT
  Sex: Female
  Weight: 83.99 kg

DRUGS (2)
  1. ACTHAR [Concomitant]
     Active Substance: CORTICOTROPIN
     Route: 065
  2. TECFIDERA [Suspect]
     Active Substance: DIMETHYL FUMARATE
     Indication: MULTIPLE SCLEROSIS
     Route: 048

REACTIONS (3)
  - Rhinorrhoea [Unknown]
  - Cough [Unknown]
  - Flushing [Unknown]
